FAERS Safety Report 9329566 (Version 1)
Quarter: 2013Q2

REPORT INFORMATION
  Report Type: Spontaneous
  Country: US (occurrence: US)
  Receive Date: 20130604
  Receipt Date: 20130604
  Transmission Date: 20140414
  Serious: No
  Sender: FDA-Public Use
  Company Number: US-SANOFI-AVENTIS-2013SA030004

PATIENT
  Age: 73 Year
  Sex: Male

DRUGS (4)
  1. LANTUS SOLOSTAR [Suspect]
     Indication: TYPE 2 DIABETES MELLITUS
     Dosage: TAKEN FROM- 2 DAYS AGO DOSE:20 UNIT(S)
     Route: 051
     Dates: start: 20130316
  2. LANTUS SOLOSTAR [Suspect]
     Indication: TYPE 2 DIABETES MELLITUS
     Dosage: DOSE:26 UNIT(S)
     Route: 051
  3. SOLOSTAR [Suspect]
     Indication: DEVICE THERAPY
     Dosage: TAKEN FROM- 2 DAYS AGO
     Dates: start: 20130316
  4. JANUVIA [Concomitant]

REACTIONS (4)
  - Fall [Unknown]
  - Blood glucose increased [Recovered/Resolved]
  - Drug ineffective [Unknown]
  - Incorrect storage of drug [Unknown]
